FAERS Safety Report 23393998 (Version 1)
Quarter: 2024Q1

REPORT INFORMATION
  Report Type: Spontaneous
  Country: US (occurrence: US)
  Receive Date: 20240111
  Receipt Date: 20240111
  Transmission Date: 20240410
  Serious: No
  Sender: FDA-Public Use
  Company Number: US-SA-SAC20240108000974

PATIENT
  Age: 62 Year
  Sex: Female
  Weight: 45.81 kg

DRUGS (8)
  1. DUPIXENT [Suspect]
     Active Substance: DUPILUMAB
     Indication: Dermatitis atopic
     Dosage: 300 MG, QOW
     Route: 058
     Dates: start: 20231130
  2. VITAMIN B COMPLEX [Concomitant]
     Active Substance: CYANOCOBALAMIN\DEXPANTHENOL\NIACINAMIDE\PYRIDOXINE HYDROCHLORIDE\RIBOFLAVIN 5^-PHOSPHATE SODIUM\THIA
  3. VITAMIN D3 [Concomitant]
     Active Substance: CHOLECALCIFEROL
  4. LEVSIN SL [Concomitant]
     Active Substance: HYOSCYAMINE SULFATE
  5. BIOTIN [Concomitant]
     Active Substance: BIOTIN
  6. COSENTYX [Concomitant]
     Active Substance: SECUKINUMAB
  7. VITAMINS NOS [Concomitant]
     Active Substance: VITAMINS
  8. VITAMIN E [Concomitant]
     Active Substance: .ALPHA.-TOCOPHEROL

REACTIONS (1)
  - Therapeutic product effect delayed [Unknown]
